FAERS Safety Report 6102596-0 (Version None)
Quarter: 2009Q1

REPORT INFORMATION
  Report Type: 
  Country: None (occurrence: None)
  Receive Date: 20090304
  Receipt Date: 20080924
  Transmission Date: 20090719
  Serious: No
  Sender: FDA-Public Use
  Company Number: A0749036A

PATIENT
  Age: 65 Year
  Sex: Male

DRUGS (7)
  1. REQUIP [Suspect]
     Indication: PARKINSON'S DISEASE
     Dosage: 6MG THREE TIMES PER DAY
     Route: 048
     Dates: start: 20050101
  2. REQUIP XL [Suspect]
     Indication: PARKINSON'S DISEASE
     Dosage: 8MG TWICE PER DAY
     Route: 048
     Dates: start: 20080919
  3. ATENOLOL [Concomitant]
  4. SYNTHROID [Concomitant]
  5. STALEVO 100 [Concomitant]
  6. FEXOFENADINE [Concomitant]
  7. ROZEREM [Concomitant]

REACTIONS (1)
  - NAUSEA [None]
